FAERS Safety Report 8395541-9 (Version None)
Quarter: 2012Q2

REPORT INFORMATION
  Report Type: 
  Country: None (occurrence: None)
  Receive Date: 20120530
  Receipt Date: 20110705
  Transmission Date: 20120825
  Serious: No
  Sender: FDA-Public Use
  Company Number: US-GLAXOSMITHKLINE-A0934946A

PATIENT
  Age: 51 Year
  Sex: Female

DRUGS (14)
  1. VENTOLIN [Suspect]
     Indication: ASTHMA
     Dosage: 2PUFF AS REQUIRED
     Route: 055
     Dates: start: 20110601
  2. FOLIC ACID [Concomitant]
  3. ESTROGEN [Concomitant]
     Indication: HORMONE REPLACEMENT THERAPY
  4. FENTANYL-100 [Concomitant]
  5. AMITRIPTYLINE HCL [Concomitant]
  6. VITAMIN B-12 [Concomitant]
  7. EXCEDRIN (MIGRAINE) [Concomitant]
  8. PROTEIN SHAKE [Concomitant]
  9. CALCIUM + VITAMIN D3 [Concomitant]
  10. TOPAMAX [Concomitant]
  11. BEAUITOL [Concomitant]
  12. OXYCODONE HCL [Concomitant]
  13. VITAMIN E [Concomitant]
  14. IMITREX [Concomitant]

REACTIONS (1)
  - HEADACHE [None]
